FAERS Safety Report 17390420 (Version 1)
Quarter: 2020Q1

REPORT INFORMATION
  Report Type: Spontaneous
  Country: CA (occurrence: CA)
  Receive Date: 20200207
  Receipt Date: 20200207
  Transmission Date: 20200409
  Serious: Yes (Hospitalization)
  Sender: FDA-Public Use
  Company Number: CA-SAMSUNG BIOEPIS-SB-2020-03454

PATIENT
  Age: 74 Year
  Sex: Female

DRUGS (1)
  1. INFLIXIMAB [Suspect]
     Active Substance: INFLIXIMAB
     Indication: CROHN^S DISEASE
     Route: 042

REACTIONS (7)
  - Feeling abnormal [Recovered/Resolved]
  - Hypertension [Recovered/Resolved]
  - Drug level below therapeutic [Recovered/Resolved]
  - Gait disturbance [Recovered/Resolved]
  - Condition aggravated [Recovered/Resolved]
  - Neuropathy peripheral [Recovered/Resolved]
  - Female genital tract fistula [Recovered/Resolved]
